FAERS Safety Report 25416729 (Version 1)
Quarter: 2025Q2

REPORT INFORMATION
  Report Type: Spontaneous
  Country: CA (occurrence: CA)
  Receive Date: 20250610
  Receipt Date: 20250610
  Transmission Date: 20250716
  Serious: Yes (Other)
  Sender: INDOCO REMEDIES LIMITED
  Company Number: CA-INDOCO-IND-2025-CA-LIT-00602

PATIENT
  Age: 86 Year
  Sex: Male

DRUGS (1)
  1. BRIMONIDINE TARTRATE [Suspect]
     Active Substance: BRIMONIDINE TARTRATE
     Indication: Product used for unknown indication
     Route: 065

REACTIONS (1)
  - Mucous membrane pemphigoid [Recovering/Resolving]
